FAERS Safety Report 5335914-1 (Version None)
Quarter: 2007Q1

REPORT INFORMATION
  Report Type: 
  Country: None (occurrence: None)
  Receive Date: 20070302
  Receipt Date: 20061128
  Transmission Date: 20070707
  Serious: No
  Sender: FDA-Public Use
  Company Number: PHEH2006US13867

PATIENT
  Age: 82 Year
  Sex: Female
  Weight: 57.1 kg

DRUGS (1)
  1. EXJADE [Suspect]
     Indication: SERUM FERRITIN INCREASED
     Dosage: 750MG, THREE TIMES PER WEEK, ORAL
     Route: 048
     Dates: start: 20051222

REACTIONS (2)
  - ABNORMAL FAECES [None]
  - BREATH ODOUR [None]
